FAERS Safety Report 5341762-9 (Version None)
Quarter: 2007Q2

REPORT INFORMATION
  Report Type: 
  Country: None (occurrence: None)
  Receive Date: 20070529
  Receipt Date: 20070529
  Transmission Date: 20071010
  Serious: No
  Sender: FDA-Public Use
  Company Number: None

PATIENT
  Age: 38 Year
  Sex: Male
  Weight: 88.4514 kg

DRUGS (2)
  1. ZOLOFT [Suspect]
     Indication: STRESS
     Dosage: ONE CAPLET 2X DAY PO
     Route: 048
     Dates: start: 20050805, end: 20051205
  2. FLUXIFINE [Suspect]

REACTIONS (8)
  - DECREASED INTEREST [None]
  - EJACULATION FAILURE [None]
  - HALLUCINATION [None]
  - INSOMNIA [None]
  - LIBIDO DECREASED [None]
  - PARAESTHESIA [None]
  - PARTNER STRESS [None]
  - TINNITUS [None]
